FAERS Safety Report 11075805 (Version 2)
Quarter: 2015Q2

REPORT INFORMATION
  Report Type: Spontaneous
  Country: US (occurrence: US)
  Receive Date: 20150429
  Receipt Date: 20150507
  Transmission Date: 20150821
  Serious: No
  Sender: FDA-Public Use
  Company Number: US-HORIZON-ACT-0068-2015

PATIENT
  Age: 11 Year
  Sex: Male

DRUGS (5)
  1. FLUDROCORTISONE [Concomitant]
     Active Substance: FLUDROCORTISONE
  2. ACTIMMUNE [Suspect]
     Active Substance: INTERFERON GAMMA-1B
     Indication: FRIEDREICH^S ATAXIA
     Route: 058
     Dates: start: 201412, end: 20150319
  3. VERAPAMIL [Concomitant]
     Active Substance: VERAPAMIL HYDROCHLORIDE
     Dosage: 40 MG
  4. HYDROCORTISONE. [Concomitant]
     Active Substance: HYDROCORTISONE
  5. COENZYME Q 10 [Concomitant]
     Dosage: 200 ML

REACTIONS (2)
  - Off label use [Unknown]
  - Neutropenia [Recovering/Resolving]
